FAERS Safety Report 4478262-4 (Version None)
Quarter: 2004Q3

REPORT INFORMATION
  Report Type: 
  Country: None (occurrence: None)
  Receive Date: 20040923
  Receipt Date: 20040726
  Transmission Date: 20050211
  Serious: No
  Sender: FDA-Public Use
  Company Number: USA040773729

PATIENT
  Age: 69 Year
  Sex: Male

DRUGS (10)
  1. FORTEO [Suspect]
     Indication: OSTEOPOROSIS
     Dates: start: 20040601
  2. NEURONTIN [Concomitant]
  3. FOSAMAX [Concomitant]
  4. AVANDIA [Concomitant]
  5. LIPITOR [Concomitant]
  6. POTASSIUM [Concomitant]
  7. LANTUS [Concomitant]
  8. ASPIRIN [Concomitant]
  9. LASIX [Concomitant]
  10. MOBIC [Concomitant]

REACTIONS (1)
  - PAIN IN EXTREMITY [None]
